FAERS Safety Report 10359609 (Version 1)
Quarter: 2014Q3

REPORT INFORMATION
  Report Type: Spontaneous
  Country: US (occurrence: None)
  Receive Date: 20140801
  Receipt Date: 20140801
  Transmission Date: 20150326
  Serious: Yes (Other)
  Sender: FDA-Public Use
  Company Number: None

PATIENT
  Age: 44 Year
  Sex: Female

DRUGS (2)
  1. TUBERSOL [Suspect]
     Active Substance: TUBERCULIN PURIFIED PROTEIN DERIVATIVE
     Indication: TUBERCULOSIS
     Dosage: ANNUAL/AS NEEDED
     Route: 023
     Dates: start: 20140728, end: 20140728
  2. TUBERSOL [Suspect]
     Active Substance: TUBERCULIN PURIFIED PROTEIN DERIVATIVE
     Indication: INVESTIGATION
     Dosage: ANNUAL/AS NEEDED
     Route: 023
     Dates: start: 20140728, end: 20140728

REACTIONS (2)
  - Hypersensitivity [None]
  - Paraesthesia oral [None]

NARRATIVE: CASE EVENT DATE: 20140729
